FAERS Safety Report 10769117 (Version 1)
Quarter: 2015Q1

REPORT INFORMATION
  Report Type: Spontaneous
  Country: US (occurrence: None)
  Receive Date: 20150205
  Receipt Date: 20150205
  Transmission Date: 20150721
  Serious: Yes (Hospitalization)
  Sender: FDA-Public Use
  Company Number: None

PATIENT
  Age: 86 Year
  Sex: Female
  Weight: 73.9 kg

DRUGS (19)
  1. COREG [Concomitant]
     Active Substance: CARVEDILOL
  2. NTG [Concomitant]
     Active Substance: NITROGLYCERIN
  3. TRAMADOL [Concomitant]
     Active Substance: TRAMADOL
  4. LANTUS [Suspect]
     Active Substance: INSULIN GLARGINE
     Indication: DIABETES MELLITUS
     Dosage: CHRONIC, 60UNITS, BID, SQ
     Route: 058
  5. SYNTHROID [Concomitant]
     Active Substance: LEVOTHYROXINE SODIUM
  6. ALBUTEROL. [Concomitant]
     Active Substance: ALBUTEROL
  7. LIPITOR [Concomitant]
     Active Substance: ATORVASTATIN CALCIUM
  8. LASIX [Concomitant]
     Active Substance: FUROSEMIDE
  9. AMLODIPINE [Concomitant]
     Active Substance: AMLODIPINE BESYLATE
  10. COUMADIN [Concomitant]
     Active Substance: WARFARIN SODIUM
  11. JANUVIA [Suspect]
     Active Substance: SITAGLIPTIN PHOSPHATE
     Dosage: 25UNITS, DAILY, SQ
     Route: 058
  12. NEURONTIN [Concomitant]
     Active Substance: GABAPENTIN
  13. NORCO [Concomitant]
     Active Substance: ACETAMINOPHEN\HYDROCODONE BITARTRATE
  14. LIDODERM [Concomitant]
     Active Substance: LIDOCAINE
  15. CYMBALTA [Concomitant]
     Active Substance: DULOXETINE HYDROCHLORIDE
  16. CLARITIN [Concomitant]
     Active Substance: LORATADINE
  17. PROTONIX [Concomitant]
     Active Substance: PANTOPRAZOLE SODIUM
  18. NOVOLOG [Suspect]
     Active Substance: INSULIN ASPART
     Indication: DIABETES MELLITUS
     Dosage: CHRONIC, SSI, TID, SQ
     Route: 058
  19. IMDUR [Concomitant]
     Active Substance: ISOSORBIDE MONONITRATE

REACTIONS (5)
  - Somnolence [None]
  - Blood insulin increased [None]
  - Hypoglycaemia [None]
  - Hypophagia [None]
  - Dyspnoea [None]

NARRATIVE: CASE EVENT DATE: 20140901
